FAERS Safety Report 6885375-6 (Version None)
Quarter: 2010Q3

REPORT INFORMATION
  Report Type: 
  Country: None (occurrence: None)
  Receive Date: 20100729
  Receipt Date: 20100715
  Transmission Date: 20110219
  Serious: Yes (Other)
  Sender: FDA-Public Use
  Company Number: TW-MYLANLABS-2010S1012578

PATIENT
  Age: 48 Year
  Sex: Female

DRUGS (4)
  1. VENLAFAXINE [Suspect]
     Indication: DEPRESSION
     Route: 065
  2. MIRTAZAPINE [Suspect]
     Indication: DEPRESSION
     Dosage: DOSAGE WAS TITRATED UP TO 30 MG/DAY
     Route: 065
  3. ESTAZOLAM [Concomitant]
     Route: 065
  4. ZOLPIDEM [Concomitant]
     Route: 065

REACTIONS (1)
  - ANGIOEDEMA [None]
